FAERS Safety Report 16877962 (Version 1)
Quarter: 2019Q4

REPORT INFORMATION
  Report Type: Spontaneous
  Country: US (occurrence: US)
  Receive Date: 20191002
  Receipt Date: 20191002
  Transmission Date: 20200122
  Serious: Yes (Other)
  Sender: FDA-Public Use
  Company Number: US-JNJFOC-20190932259

PATIENT
  Age: 79 Year
  Sex: Female

DRUGS (6)
  1. METOPROLOL. [Concomitant]
     Active Substance: METOPROLOL
  2. RIVAROXABAN [Suspect]
     Active Substance: RIVAROXABAN
     Indication: ATRIAL FIBRILLATION
     Route: 048
     Dates: end: 20190801
  3. LISINOPRIL. [Concomitant]
     Active Substance: LISINOPRIL
  4. DILTIAZEM. [Concomitant]
     Active Substance: DILTIAZEM
  5. ATORVASTATIN [Concomitant]
     Active Substance: ATORVASTATIN
  6. RIVAROXABAN [Suspect]
     Active Substance: RIVAROXABAN
     Indication: CEREBROVASCULAR ACCIDENT PROPHYLAXIS
     Route: 048
     Dates: start: 20190806

REACTIONS (5)
  - Urinary tract infection [Unknown]
  - Uterine prolapse [Recovered/Resolved]
  - Cerebrovascular accident [Recovering/Resolving]
  - Bladder disorder [Unknown]
  - Overweight [Not Recovered/Not Resolved]

NARRATIVE: CASE EVENT DATE: 20190805
